FAERS Safety Report 20324934 (Version 2)
Quarter: 2022Q1

REPORT INFORMATION
  Report Type: Other
  Country: US (occurrence: US)
  Receive Date: 20220111
  Receipt Date: 20220225
  Transmission Date: 20220423
  Serious: Yes (Hospitalization, Other)
  Sender: FDA-Public Use
  Company Number: US-Covis Pharma GmbH-2022COV00127

PATIENT
  Age: 0 Year
  Sex: Male
  Weight: 3.052 kg

DRUGS (1)
  1. MAKENA [Suspect]
     Active Substance: HYDROXYPROGESTERONE CAPROATE
     Indication: Foetal exposure during pregnancy
     Route: 064
     Dates: start: 20210901

REACTIONS (2)
  - Hypoglycaemia neonatal [Unknown]
  - Premature baby [Unknown]

NARRATIVE: CASE EVENT DATE: 20220109
